FAERS Safety Report 19895560 (Version 1)
Quarter: 2021Q3

REPORT INFORMATION
  Report Type: Spontaneous
  Country: US (occurrence: US)
  Receive Date: 20210929
  Receipt Date: 20210929
  Transmission Date: 20211014
  Serious: Yes (Hospitalization)
  Sender: FDA-Public Use
  Company Number: None

PATIENT
  Age: 50 Year
  Sex: Male
  Weight: 91.4 kg

DRUGS (22)
  1. AZITHROMYCIN ANHYDROUS. [Concomitant]
     Active Substance: AZITHROMYCIN ANHYDROUS
     Dates: start: 20210923, end: 20210926
  2. HYDROXYINE [Concomitant]
     Dates: start: 20210927
  3. ENOXAPARIN [Concomitant]
     Active Substance: ENOXAPARIN
     Dates: start: 20210924
  4. METHYLPREDNISONE [Concomitant]
     Active Substance: METHYLPREDNISOLONE
     Dates: start: 20210924
  5. MORPHINE [Concomitant]
     Active Substance: MORPHINE
     Dates: start: 20210927
  6. PANTOPRAZOLE [Concomitant]
     Active Substance: PANTOPRAZOLE
     Dates: start: 20210925
  7. ONDANSETRON [Concomitant]
     Active Substance: ONDANSETRON
     Dates: start: 20210923
  8. LORAZEPAM. [Concomitant]
     Active Substance: LORAZEPAM
     Dates: start: 20210924
  9. ACTEMRA [Suspect]
     Active Substance: TOCILIZUMAB
     Indication: COVID-19
     Dosage: ?          OTHER FREQUENCY:ONCE;?
     Route: 042
     Dates: start: 20210924, end: 20210924
  10. HYDRALAZINE [Concomitant]
     Active Substance: HYDRALAZINE HYDROCHLORIDE
     Dates: start: 20210927
  11. MELATONIN [Concomitant]
     Active Substance: MELATONIN
     Dates: start: 20210923
  12. GUIAFENESIN [Concomitant]
     Dates: start: 20210924
  13. AMIODARONE [Concomitant]
     Active Substance: AMIODARONE
     Dates: start: 20210928
  14. CEFTRIAXONE. [Concomitant]
     Active Substance: CEFTRIAXONE
     Dates: start: 20210923, end: 20210924
  15. ZINC SULFATE. [Concomitant]
     Active Substance: ZINC SULFATE
     Dates: start: 20210928
  16. METOCLOPRAMIDE. [Concomitant]
     Active Substance: METOCLOPRAMIDE
     Dates: start: 20210924
  17. DEXAMETHASONE. [Concomitant]
     Active Substance: DEXAMETHASONE
     Dates: start: 20210923, end: 20210924
  18. HEPARIN [Concomitant]
     Active Substance: HEPARIN SODIUM
     Dates: start: 20210929
  19. CEFEPIME [Concomitant]
     Active Substance: CEFEPIME HYDROCHLORIDE
     Dates: start: 20210923, end: 20210923
  20. DILTIAZEM. [Concomitant]
     Active Substance: DILTIAZEM
     Dates: start: 20210928
  21. KETOROLAC [Concomitant]
     Active Substance: KETOROLAC TROMETHAMINE
     Dates: start: 20210923
  22. METOPROLOL. [Concomitant]
     Active Substance: METOPROLOL
     Dates: start: 20210928

REACTIONS (9)
  - Abdominal pain [None]
  - Nausea [None]
  - Vomiting [None]
  - Headache [None]
  - Cough [None]
  - Hypoxia [None]
  - Diarrhoea [None]
  - Chest pain [None]
  - Atrial fibrillation [None]

NARRATIVE: CASE EVENT DATE: 20210928
